FAERS Safety Report 8766251 (Version 1)
Quarter: 2012Q4

REPORT INFORMATION
  Report Type: Report from Study
  Country: GB (occurrence: GB)
  Receive Date: 20120904
  Receipt Date: 20120904
  Transmission Date: 20130627
  Serious: Yes (Life-Threatening)
  Sender: FDA-Public Use
  Company Number: GB-ROCHE-796546

PATIENT
  Age: 37 Year
  Sex: Male
  Weight: 63.8 kg

DRUGS (13)
  1. MIRCERA [Suspect]
     Indication: NEPHROGENIC ANAEMIA
     Dosage: DATE OF LAST DOSE PRIOR TO SAE: 15 JULY 2011.
     Route: 058
  2. CALCITRIOL [Concomitant]
     Route: 065
  3. CINACALCET [Concomitant]
     Route: 065
  4. LANTHANUM CARBONATE [Concomitant]
     Dosage: REPORTED AS LANTHANUM
     Route: 065
  5. CALCICHEW [Concomitant]
     Route: 065
  6. CALCICHEW [Concomitant]
     Dosage: TDD: 6 TABS
     Route: 065
  7. ATENOLOL [Concomitant]
     Route: 065
  8. AMLODIPINE [Concomitant]
     Route: 065
  9. PREDNISOLONE [Concomitant]
     Route: 065
  10. PROGRAFT [Concomitant]
     Route: 065
     Dates: start: 20101208, end: 20110809
  11. ASPIRIN [Concomitant]
     Route: 065
  12. CITALOPRAM [Concomitant]
     Route: 065
  13. OMEPRAZOLE [Concomitant]
     Route: 065

REACTIONS (1)
  - Demyelination [Unknown]
